FAERS Safety Report 10285983 (Version 1)
Quarter: 2014Q3

REPORT INFORMATION
  Report Type: Spontaneous
  Country: CN (occurrence: CN)
  Receive Date: 20140709
  Receipt Date: 20140709
  Transmission Date: 20150326
  Serious: Yes (Hospitalization)
  Sender: FDA-Public Use
  Company Number: PHHY2014CN083987

PATIENT
  Age: 64 Year
  Sex: Female

DRUGS (1)
  1. MIACALCIC [Suspect]
     Active Substance: CALCITONIN SALMON
     Indication: OSTEOPOROSIS
     Dosage: 4400 IU/2 ML, QD
     Route: 045
     Dates: start: 20140116, end: 20140303

REACTIONS (6)
  - Vitamin B complex deficiency [Not Recovered/Not Resolved]
  - Hypoaesthesia oral [Not Recovered/Not Resolved]
  - Condition aggravated [Not Recovered/Not Resolved]
  - Lip swelling [Not Recovered/Not Resolved]
  - Lip exfoliation [Not Recovered/Not Resolved]
  - Cheilitis [Not Recovered/Not Resolved]

NARRATIVE: CASE EVENT DATE: 20140122
